FAERS Safety Report 15124571 (Version 2)
Quarter: 2018Q4

REPORT INFORMATION
  Report Type: Spontaneous
  Country: US (occurrence: US)
  Receive Date: 20180710
  Receipt Date: 20181102
  Transmission Date: 20190204
  Serious: No
  Sender: FDA-Public Use
  Company Number: US-PFIZER INC-2018276602

PATIENT
  Age: 55 Year
  Sex: Female

DRUGS (1)
  1. XELJANZ [Suspect]
     Active Substance: TOFACITINIB CITRATE
     Dosage: 5 MG, 2X/DAY

REACTIONS (7)
  - Urticaria [Unknown]
  - Pain in jaw [Unknown]
  - Sinusitis [Unknown]
  - Glycosylated haemoglobin increased [Unknown]
  - Rash [Unknown]
  - Sensory disturbance [Recovering/Resolving]
  - Wound [Unknown]
